FAERS Safety Report 8579271-6 (Version None)
Quarter: 2012Q3

REPORT INFORMATION
  Report Type: 
  Country: None (occurrence: None)
  Receive Date: 20120726
  Receipt Date: 20120716
  Transmission Date: 20120928
  Serious: Yes (Hospitalization)
  Sender: FDA-Public Use
  Company Number: JP-2012-15655

PATIENT
  Age: 49 Year
  Sex: Female

DRUGS (4)
  1. CILOSTAZOL [Suspect]
     Indication: DIABETIC COMPLICATION
     Dosage: 100 MG MILLIGRAM(S), BID, ORAL
     Route: 048
     Dates: start: 20090612
  2. INSULIN LISPRO (INSULIN LISPRO) [Concomitant]
  3. IRBESARTAN [Concomitant]
  4. METFFORMIN HYDROCHLORIDE [Concomitant]

REACTIONS (1)
  - INTRAVENTRICULAR HAEMORRHAGE [None]
